FAERS Safety Report 20045082 (Version 1)
Quarter: 2021Q4

REPORT INFORMATION
  Report Type: Spontaneous
  Country: CZ (occurrence: CZ)
  Receive Date: 20211108
  Receipt Date: 20211108
  Transmission Date: 20220303
  Serious: Yes (Hospitalization, Other)
  Sender: FDA-Public Use
  Company Number: None

PATIENT
  Age: 48 Year
  Sex: Male

DRUGS (5)
  1. ABILIFY MAINTENA [Suspect]
     Active Substance: ARIPIPRAZOLE
     Indication: Schizophrenia
     Dosage: DOSE 1: 17.8.2021DOSE 2: 29.9.2021DOSE 3: 8.10.2021
     Route: 030
  2. OLPINAT [Concomitant]
     Indication: Product used for unknown indication
     Dosage: UNK
     Route: 065
  3. ARIPIPRAZOLE [Concomitant]
     Active Substance: ARIPIPRAZOLE
     Indication: Product used for unknown indication
     Dosage: UNK
     Route: 065
  4. RIVOTRIL [Concomitant]
     Active Substance: CLONAZEPAM
     Indication: Product used for unknown indication
     Dosage: UNK
     Route: 065
  5. OMEPRAZOLE [Concomitant]
     Active Substance: OMEPRAZOLE
     Indication: Product used for unknown indication
     Dosage: UNK
     Route: 065

REACTIONS (13)
  - Fear of death [Unknown]
  - Dysuria [Unknown]
  - Abdominal pain [Unknown]
  - Chest discomfort [Unknown]
  - Chest pain [Unknown]
  - Photophobia [Unknown]
  - Speech disorder [Unknown]
  - Gait disturbance [Unknown]
  - Vision blurred [Unknown]
  - Dizziness [Unknown]
  - Weight decreased [Unknown]
  - Hypertension [Unknown]
  - Fatigue [Unknown]

NARRATIVE: CASE EVENT DATE: 20210817
